FAERS Safety Report 13032089 (Version 1)
Quarter: 2016Q4

REPORT INFORMATION
  Report Type: Spontaneous
  Country: US (occurrence: US)
  Receive Date: 20161215
  Receipt Date: 20161215
  Transmission Date: 20170207
  Serious: No
  Sender: FDA-Public Use
  Company Number: US-MEDA-2016120035

PATIENT
  Age: 72 Year
  Sex: Male
  Weight: 75 kg

DRUGS (3)
  1. AMLODIPINE [Concomitant]
     Active Substance: AMLODIPINE BESYLATE
     Indication: HYPERTENSION
  2. LOSARTAN. [Concomitant]
     Active Substance: LOSARTAN
     Indication: HYPERTENSION
  3. MUSE [Suspect]
     Active Substance: ALPROSTADIL
     Indication: ERECTILE DYSFUNCTION
     Route: 066
     Dates: start: 201611

REACTIONS (3)
  - Wrong technique in product usage process [Recovered/Resolved]
  - Drug ineffective [Unknown]
  - Application site discomfort [Recovered/Resolved]

NARRATIVE: CASE EVENT DATE: 201611
